FAERS Safety Report 4917220-X (Version None)
Quarter: 2006Q1

REPORT INFORMATION
  Report Type: 
  Country: None (occurrence: None)
  Receive Date: 20060215
  Receipt Date: 20060203
  Transmission Date: 20060701
  Serious: Yes (Disabling)
  Sender: FDA-Public Use
  Company Number: 2006002711

PATIENT
  Age: 66 Year
  Sex: Male
  Weight: 106.5953 kg

DRUGS (6)
  1. LYRICA [Suspect]
     Indication: PARAESTHESIA
     Dosage: 150 MG (75 MG, 2 IN 1 D)
     Dates: start: 20051214, end: 20051221
  2. BENICAR [Concomitant]
  3. AVANDAMET (METFORMIN HYDROCHLORIDE, ROSIGLITAZONE) [Concomitant]
  4. VYTORN (EZETIMIBE, SIMVASTATIN) [Concomitant]
  5. CELEBREX [Concomitant]
  6. ACETYLSALICYLIC ACID (ACETYLSZLICYLIC ACID) [Concomitant]

REACTIONS (6)
  - DIPLOPIA [None]
  - DIZZINESS [None]
  - DYSSTASIA [None]
  - IMPAIRED WORK ABILITY [None]
  - VISUAL ACUITY REDUCED [None]
  - VITH NERVE PARALYSIS [None]
